FAERS Safety Report 8117027-9 (Version None)
Quarter: 2011Q4

REPORT INFORMATION
  Report Type: 
  Country: None (occurrence: None)
  Receive Date: 20111227
  Receipt Date: 20110404
  Transmission Date: 20120403
  Serious: Yes (Hospitalization)
  Sender: FDA-Public Use
  Company Number: PHHY2011US28074

PATIENT
  Age: 59 Year
  Sex: Female

DRUGS (1)
  1. FEMARA [Suspect]
     Indication: BREAST CANCER
     Dosage: 2.5 MG, DAILY, ORAL
     Route: 048
     Dates: start: 20091013, end: 20100913

REACTIONS (1)
  - TRANSIENT ISCHAEMIC ATTACK [None]
